FAERS Safety Report 22173825 (Version 4)
Quarter: 2023Q2

REPORT INFORMATION
  Report Type: Report from Study
  Country: US (occurrence: US)
  Receive Date: 20230404
  Receipt Date: 20230602
  Transmission Date: 20230721
  Serious: No
  Sender: FDA-Public Use
  Company Number: US-BIOGEN-2023BI01196286

PATIENT
  Age: 81 Year
  Sex: Male
  Weight: 79.8 kg

DRUGS (10)
  1. ADUCANUMAB [Suspect]
     Active Substance: ADUCANUMAB
     Indication: Dementia Alzheimer^s type
     Route: 050
     Dates: start: 20221216, end: 20221216
  2. ADUCANUMAB [Suspect]
     Active Substance: ADUCANUMAB
     Route: 050
     Dates: start: 20230113, end: 20230113
  3. ADUCANUMAB [Suspect]
     Active Substance: ADUCANUMAB
     Route: 050
     Dates: start: 20230210, end: 20230210
  4. ADUCANUMAB [Suspect]
     Active Substance: ADUCANUMAB
     Route: 050
     Dates: start: 20230308, end: 20230308
  5. ADUCANUMAB [Suspect]
     Active Substance: ADUCANUMAB
     Route: 050
     Dates: start: 20230405, end: 20230405
  6. AMYVID [Suspect]
     Active Substance: FLORBETAPIR F-18
     Indication: Positron emission tomogram
     Route: 050
     Dates: start: 20221108, end: 20221108
  7. FLORQUINITAU [Suspect]
     Active Substance: FLORQUINITAU
     Indication: Positron emission tomogram
     Route: 050
     Dates: start: 20221207, end: 20221207
  8. METFORMIN [Concomitant]
     Active Substance: METFORMIN HYDROCHLORIDE
     Route: 050
     Dates: start: 2018
  9. ATORVASTATIN [Concomitant]
     Active Substance: ATORVASTATIN
     Route: 050
     Dates: start: 2018
  10. ASPIRIN [Concomitant]
     Active Substance: ASPIRIN
     Route: 050
     Dates: start: 2015

REACTIONS (1)
  - Amyloid related imaging abnormality-oedema/effusion [Recovered/Resolved]

NARRATIVE: CASE EVENT DATE: 20230324
